FAERS Safety Report 24907262 (Version 2)
Quarter: 2025Q3

REPORT INFORMATION
  Report Type: Spontaneous
  Country: EU (occurrence: EU)
  Receive Date: 20250130
  Receipt Date: 20250915
  Transmission Date: 20251021
  Serious: Yes (Other)
  Sender: PFIZER
  Company Number: EU-PFIZER INC-PV202500011633

PATIENT
  Age: 59 Year
  Sex: Male
  Weight: 149 kg

DRUGS (1)
  1. LORLATINIB [Suspect]
     Active Substance: LORLATINIB
     Indication: Lung neoplasm malignant
     Dosage: 50 MG, 1X/DAY
     Route: 048
     Dates: start: 20240726

REACTIONS (5)
  - Cerebral haemorrhage [Unknown]
  - Disease recurrence [Unknown]
  - Somnolence [Unknown]
  - Cognitive disorder [Unknown]
  - Oedema [Unknown]
